FAERS Safety Report 8995075 (Version 1)
Quarter: 2013Q1

REPORT INFORMATION
  Report Type: Spontaneous
  Country: CN (occurrence: CN)
  Receive Date: 20130102
  Receipt Date: 20130102
  Transmission Date: 20140127
  Serious: Yes (Other)
  Sender: FDA-Public Use
  Company Number: PHHY2012CN121469

PATIENT
  Sex: 0

DRUGS (1)
  1. LESCOL [Suspect]
     Indication: HYPERLIPIDAEMIA
     Dosage: 40 MG, QD
     Route: 048
     Dates: start: 20091114, end: 20091115

REACTIONS (3)
  - Convulsion [Recovering/Resolving]
  - Polyuria [Recovering/Resolving]
  - Insomnia [Recovering/Resolving]
